FAERS Safety Report 4822429-X (Version None)
Quarter: 2005Q4

REPORT INFORMATION
  Report Type: 
  Country: None (occurrence: None)
  Receive Date: 20051103
  Receipt Date: 20051103
  Transmission Date: 20060501
  Serious: Yes (Other)
  Sender: FDA-Public Use
  Company Number: None

PATIENT
  Age: 35 Year
  Sex: Female

DRUGS (2)
  1. ZITHROMAX [Suspect]
     Indication: BRONCHITIS
     Dosage: 2 TABS DAY 1, 1 TAB DAYS 2-5
  2. ZITHROMAX [Suspect]
     Indication: SINUSITIS
     Dosage: 2 TABS DAY 1, 1 TAB DAYS 2-5

REACTIONS (2)
  - NAUSEA [None]
  - VOMITING [None]
